FAERS Safety Report 4888143-X (Version None)
Quarter: 2006Q1

REPORT INFORMATION
  Report Type: 
  Country: None (occurrence: None)
  Receive Date: 20060119
  Receipt Date: 20060106
  Transmission Date: 20060701
  Serious: Yes (Hospitalization, Other)
  Sender: FDA-Public Use
  Company Number: 2006005077

PATIENT
  Sex: Female

DRUGS (2)
  1. TIKOSYN [Suspect]
     Indication: ILL-DEFINED DISORDER
  2. ED A-HIST DM (CHLORPHENAMINE MALEATE, DEXTROMETHORPHAN HYDROBROMIDE, P [Concomitant]

REACTIONS (4)
  - ATRIAL FIBRILLATION [None]
  - COUGH [None]
  - NAUSEA [None]
  - PNEUMONIA [None]
